FAERS Safety Report 5619934-5 (Version None)
Quarter: 2008Q1

REPORT INFORMATION
  Report Type: 
  Country: None (occurrence: None)
  Receive Date: 20080208
  Receipt Date: 20071023
  Transmission Date: 20080703
  Serious: No
  Sender: FDA-Public Use
  Company Number: US-ABBOTT-07P-163-0422347-00

PATIENT
  Sex: Female
  Weight: 90.8 kg

DRUGS (11)
  1. VICODIN [Suspect]
     Indication: POSTOPERATIVE ANALGESIA
     Route: 048
     Dates: start: 20060701, end: 20060701
  2. EZETIMIBE [Concomitant]
     Indication: BLOOD CHOLESTEROL
     Route: 048
     Dates: start: 20071019
  3. SUCRALFATE [Concomitant]
     Indication: ULCER
     Route: 048
     Dates: start: 20071023
  4. ESTROGENIC SUBSTANCE [Concomitant]
     Indication: HORMONE REPLACEMENT THERAPY
     Dosage: ROUTE DERMAL
  5. CELECOXIB [Concomitant]
     Indication: ARTHRALGIA
     Route: 048
  6. VICODIN [Concomitant]
     Indication: ARTHRALGIA
     Route: 048
  7. MULTI-VITAMIN [Concomitant]
     Indication: DRUG USE FOR UNKNOWN INDICATION
     Route: 048
  8. METAXALONE [Concomitant]
     Indication: MUSCLE SPASMS
     Route: 048
  9. CLARITIN-D [Concomitant]
     Indication: HYPERSENSITIVITY
     Route: 048
  10. NASAL CORT [Concomitant]
     Indication: HYPERSENSITIVITY
     Dosage: ROUTE NOSE
  11. ASTALYN [Concomitant]
     Indication: HYPERSENSITIVITY
     Route: 048

REACTIONS (1)
  - CONSTIPATION [None]
